FAERS Safety Report 26074011 (Version 1)
Quarter: 2025Q4

REPORT INFORMATION
  Report Type: Report from Study
  Country: US (occurrence: US)
  Receive Date: 20251121
  Receipt Date: 20251121
  Transmission Date: 20260117
  Serious: Yes (Other)
  Sender: TAKEDA
  Company Number: US-TAKEDA-2023TUS105728

PATIENT
  Age: 60 Year
  Sex: Female
  Weight: 50 kg

DRUGS (19)
  1. BRIGATINIB [Suspect]
     Active Substance: BRIGATINIB
     Indication: Lung neoplasm malignant
     Dosage: 90 MILLIGRAM, QD
     Dates: start: 20240426
  2. BRIGATINIB [Suspect]
     Active Substance: BRIGATINIB
     Dosage: 180 MILLIGRAM, QD
  3. BRIGATINIB [Suspect]
     Active Substance: BRIGATINIB
     Dosage: 120 MILLIGRAM, QD
     Dates: start: 20240429
  4. BRIGATINIB [Suspect]
     Active Substance: BRIGATINIB
     Dosage: 30 MILLIGRAM, QD
  5. BRIGATINIB [Suspect]
     Active Substance: BRIGATINIB
     Dosage: 120 MILLIGRAM, QD
  6. BRIGATINIB [Suspect]
     Active Substance: BRIGATINIB
     Dosage: 30 MILLIGRAM, QD
  7. BRIGATINIB [Suspect]
     Active Substance: BRIGATINIB
     Dosage: 120 MILLIGRAM, QD
  8. BRIGATINIB [Suspect]
     Active Substance: BRIGATINIB
     Dosage: 120 MILLIGRAM, QD
  9. BRIGATINIB [Suspect]
     Active Substance: BRIGATINIB
     Dosage: 90 MILLIGRAM, QD
  10. BRIGATINIB [Suspect]
     Active Substance: BRIGATINIB
     Dosage: 120 MILLIGRAM
  11. BRIGATINIB [Suspect]
     Active Substance: BRIGATINIB
     Dosage: 180 MILLIGRAM, QD
  12. BRIGATINIB [Suspect]
     Active Substance: BRIGATINIB
     Dosage: 30 MILLIGRAM, QD
     Dates: start: 20240829
  13. BRIGATINIB [Suspect]
     Active Substance: BRIGATINIB
     Dosage: 90 MILLIGRAM, QD
  14. BRIGATINIB [Suspect]
     Active Substance: BRIGATINIB
     Dosage: 90 MILLIGRAM, QD
  15. BRIGATINIB [Suspect]
     Active Substance: BRIGATINIB
     Dosage: 30 MILLIGRAM, QD
  16. BRIGATINIB [Suspect]
     Active Substance: BRIGATINIB
     Dosage: 90 MILLIGRAM, QD
  17. HYDROCODONE [Concomitant]
     Active Substance: HYDROCODONE
     Dosage: UNK
  18. LEXAPRO [Concomitant]
     Active Substance: ESCITALOPRAM OXALATE
     Indication: Depression
     Dosage: UNK
  19. LEXAPRO [Concomitant]
     Active Substance: ESCITALOPRAM OXALATE
     Indication: Anxiety

REACTIONS (41)
  - Cerebrovascular accident [Unknown]
  - Acne [Unknown]
  - Bone density decreased [Unknown]
  - Muscle atrophy [Unknown]
  - Eating disorder [Unknown]
  - Blood sodium abnormal [Unknown]
  - Illness [Unknown]
  - Chest pain [Unknown]
  - Muscular weakness [Unknown]
  - Skin mass [Unknown]
  - Sleep disorder [Unknown]
  - Pleural effusion [Unknown]
  - Spinal osteoarthritis [Unknown]
  - Osteoarthritis [Unknown]
  - Pulmonary pain [Unknown]
  - Hypersensitivity [Unknown]
  - COVID-19 [Unknown]
  - Sinusitis [Unknown]
  - Vitamin D decreased [Unknown]
  - Heart rate increased [Unknown]
  - Weight decreased [Unknown]
  - Memory impairment [Unknown]
  - Hangover [Unknown]
  - Gastrooesophageal reflux disease [Unknown]
  - Decreased appetite [Unknown]
  - Back pain [Unknown]
  - Fatigue [Unknown]
  - Nausea [Unknown]
  - Hyponatraemia [Unknown]
  - Abdominal discomfort [Unknown]
  - Burning sensation [Unknown]
  - Dermatitis acneiform [Unknown]
  - Musculoskeletal pain [Unknown]
  - Dyspepsia [Unknown]
  - Pain [Unknown]
  - Headache [Unknown]
  - Blood creatinine increased [Unknown]
  - Asthenia [Unknown]
  - Migraine [Unknown]
  - Dental discomfort [Unknown]
  - Hypoaesthesia [Unknown]
